FAERS Safety Report 5035607-4 (Version None)
Quarter: 2006Q2

REPORT INFORMATION
  Report Type: 
  Country: None (occurrence: None)
  Receive Date: 20060627
  Receipt Date: 20060313
  Transmission Date: 20061013
  Serious: Yes (Other)
  Sender: FDA-Public Use
  Company Number: S06-USA-00723-01

PATIENT
  Age: 44 Year
  Sex: Male

DRUGS (3)
  1. WELLBUTRIN [Suspect]
     Indication: MAJOR DEPRESSION
     Dosage: 450MG PER DAY
     Route: 048
     Dates: start: 19991020
  2. LEXAPRO [Suspect]
     Indication: MAJOR DEPRESSION
     Dosage: 15MG PER DAY
     Route: 048
     Dates: start: 20051004
  3. RISPERDAL [Concomitant]

REACTIONS (7)
  - BIFASCICULAR BLOCK [None]
  - BLOOD PRESSURE INCREASED [None]
  - BUNDLE BRANCH BLOCK LEFT [None]
  - BUNDLE BRANCH BLOCK RIGHT [None]
  - ELECTROCARDIOGRAM ABNORMAL [None]
  - QRS AXIS ABNORMAL [None]
  - SINUS RHYTHM [None]
